FAERS Safety Report 8824522 (Version 1)
Quarter: 2012Q4

REPORT INFORMATION
  Report Type: 
  Country: US (occurrence: US)
  Receive Date: 20121004
  Receipt Date: 20121004
  Transmission Date: 20130627
  Serious: Yes (Hospitalization)
  Sender: FDA-Public Use
  Company Number: US-BAYER-2012-101621

PATIENT
  Age: 27 Year
  Sex: Female

DRUGS (5)
  1. YASMIN [Suspect]
  2. ASACOL [Concomitant]
     Dosage: 400 mg, TID
     Route: 048
  3. INDERAL [Concomitant]
     Dosage: 10 mg, BID
     Route: 048
  4. ZANTAC [Concomitant]
     Dosage: 150 mg, BID
     Route: 048
  5. PROPRANOLOL [Concomitant]

REACTIONS (2)
  - Mesenteric vein thrombosis [None]
  - Cholelithiasis [None]
